FAERS Safety Report 9260761 (Version 1)
Quarter: 2013Q2

REPORT INFORMATION
  Report Type: Spontaneous
  Country: CA (occurrence: CA)
  Receive Date: 20130429
  Receipt Date: 20130429
  Transmission Date: 20140414
  Serious: Yes (Disabling)
  Sender: FDA-Public Use
  Company Number: CA-TEVA-400963USA

PATIENT
  Age: 75 Year
  Sex: Male
  Weight: 80.81 kg

DRUGS (6)
  1. ATENOLOL [Suspect]
     Dosage: 100 MILLIGRAM DAILY;
     Route: 048
  2. AVAPRO [Concomitant]
  3. HUMULIN [Concomitant]
     Route: 030
  4. LIPITOR [Concomitant]
  5. NORVASC [Concomitant]
  6. PLAVIX [Concomitant]

REACTIONS (3)
  - Blood pressure increased [Recovered/Resolved]
  - Drug ineffective [Recovered/Resolved]
  - Headache [Recovered/Resolved]
